FAERS Safety Report 5678598-5 (Version None)
Quarter: 2008Q1

REPORT INFORMATION
  Report Type: 
  Country: None (occurrence: None)
  Receive Date: 20080325
  Receipt Date: 20080313
  Transmission Date: 20080703
  Serious: Yes (Other)
  Sender: FDA-Public Use
  Company Number: PHHY2008JP03175

PATIENT
  Age: 69 Year
  Sex: Male

DRUGS (5)
  1. ZOMETA [Suspect]
     Indication: METASTASES TO BONE
     Dosage: 4 MG, QMO
     Route: 042
     Dates: start: 20061101, end: 20070601
  2. ZOMETA [Suspect]
     Dosage: 4 MG, UNK
     Route: 042
     Dates: start: 20071101, end: 20071201
  3. MELPHALAN [Concomitant]
     Dosage: 10 MG, UNK
     Dates: start: 20061101, end: 20070601
  4. PREDONINE [Concomitant]
     Dosage: 60 MG, UNK
     Route: 048
     Dates: start: 20061101, end: 20070601
  5. DEXAMETHASONE TAB [Concomitant]
     Dates: start: 20070701

REACTIONS (8)
  - ABSCESS ORAL [None]
  - OEDEMA MOUTH [None]
  - ORAL PAIN [None]
  - OSTEOMYELITIS [None]
  - OSTEONECROSIS [None]
  - TOOTH INFECTION [None]
  - WISDOM TEETH REMOVAL [None]
  - X-RAY ABNORMAL [None]
